FAERS Safety Report 9193359 (Version 1)
Quarter: 2013Q1

REPORT INFORMATION
  Report Type: Spontaneous
  Country: US (occurrence: US)
  Receive Date: 20130327
  Receipt Date: 20130327
  Transmission Date: 20140127
  Serious: No
  Sender: FDA-Public Use
  Company Number: US-ASTRAZENECA-2013SE16777

PATIENT
  Sex: Male

DRUGS (3)
  1. SYMBICORT [Suspect]
     Indication: BRONCHITIS
     Route: 055
  2. SYMBICORT [Suspect]
     Indication: DYSPNOEA
     Route: 055
  3. NEXIUM [Suspect]
     Indication: GASTROOESOPHAGEAL REFLUX DISEASE
     Route: 048
     Dates: start: 2006, end: 2006

REACTIONS (4)
  - Bronchitis [Unknown]
  - Chest discomfort [Unknown]
  - Respiratory tract congestion [Unknown]
  - Off label use [Unknown]
